FAERS Safety Report 25099579 (Version 1)
Quarter: 2025Q1

REPORT INFORMATION
  Report Type: Spontaneous
  Country: US (occurrence: US)
  Receive Date: 20250320
  Receipt Date: 20250320
  Transmission Date: 20250408
  Serious: No
  Sender: STRIDES
  Company Number: US-STRIDES ARCOLAB LIMITED-2024SP017262

PATIENT
  Sex: Male

DRUGS (4)
  1. GABAPENTIN [Suspect]
     Active Substance: GABAPENTIN
     Indication: Back pain
     Route: 065
  2. GABAPENTIN [Suspect]
     Active Substance: GABAPENTIN
     Indication: Back pain
  3. ACETAMINOPHEN [Suspect]
     Active Substance: ACETAMINOPHEN
     Indication: Back pain
     Route: 065
  4. ACETAMINOPHEN [Suspect]
     Active Substance: ACETAMINOPHEN
     Indication: Back pain

REACTIONS (2)
  - Treatment failure [Unknown]
  - Off label use [Unknown]
